FAERS Safety Report 10512206 (Version 1)
Quarter: 2014Q3

REPORT INFORMATION
  Report Type: Spontaneous
  Country: US (occurrence: None)
  Receive Date: 20140926
  Receipt Date: 20140926
  Transmission Date: 20150326
  Serious: No
  Sender: FDA-Public Use
  Company Number: 1000068619

PATIENT
  Age: 74 Year
  Sex: Female

DRUGS (3)
  1. RECLAST (ZOLEDRONIC ACID) (ZOLEDRONIC ACID) [Concomitant]
  2. LINZESS [Suspect]
     Active Substance: LINACLOTIDE
     Indication: CONSTIPATION
     Dosage: 290 MCG TWO TO THREE TIMES A WEEK
     Route: 048
     Dates: start: 2014, end: 20140818
  3. LINZESS [Suspect]
     Active Substance: LINACLOTIDE
     Indication: CONSTIPATION
     Route: 048
     Dates: start: 20140630, end: 20140630

REACTIONS (5)
  - Pollakiuria [None]
  - Dyspnoea exertional [None]
  - Urine output increased [None]
  - Abdominal distension [None]
  - Diarrhoea [None]

NARRATIVE: CASE EVENT DATE: 2014
